FAERS Safety Report 6866819-2 (Version None)
Quarter: 2010Q3

REPORT INFORMATION
  Report Type: 
  Country: None (occurrence: None)
  Receive Date: 20100722
  Receipt Date: 20100714
  Transmission Date: 20110219
  Serious: Yes (Hospitalization)
  Sender: FDA-Public Use
  Company Number: US-BAYER-201026842NA

PATIENT
  Age: 59 Year
  Sex: Female
  Weight: 44 kg

DRUGS (7)
  1. SORAFENIB [Suspect]
     Indication: NON-SMALL CELL LUNG CANCER
     Dosage: TOTAL DAILY DOSE: 800 MG  UNIT DOSE: 200 MG
     Route: 048
     Dates: start: 20100622, end: 20100707
  2. VORINOSTAT [Suspect]
     Indication: NON-SMALL CELL LUNG CANCER
     Dosage: TOTAL DAILY DOSE: 300 MG
     Route: 048
     Dates: start: 20100622, end: 20100629
  3. VORINOSTAT [Suspect]
     Dosage: TOTAL DAILY DOSE: 200 MG
     Route: 048
     Dates: start: 20100630, end: 20100706
  4. OXYCONTIN [Concomitant]
     Dosage: AS USED: 20-40 MG
     Route: 048
  5. OXYCODONE [Concomitant]
     Dosage: AS USED: 5-10 MG
     Route: 048
  6. CELEXA [Concomitant]
     Route: 048
  7. TRAZODONE [Concomitant]
     Route: 048

REACTIONS (3)
  - CONFUSIONAL STATE [None]
  - DEVICE RELATED INFECTION [None]
  - MENTAL STATUS CHANGES [None]
